FAERS Safety Report 6389298-0 (Version None)
Quarter: 2009Q4

REPORT INFORMATION
  Report Type: 
  Country: None (occurrence: None)
  Receive Date: 20091006
  Receipt Date: 20090930
  Transmission Date: 20100525
  Serious: Yes (Death, Other)
  Sender: FDA-Public Use
  Company Number: PHHY2009BR25757

PATIENT
  Sex: Male

DRUGS (4)
  1. EXELON [Suspect]
     Indication: DEMENTIA ALZHEIMER'S TYPE
     Dosage: 1PATCH IN THE MORNING
     Route: 062
     Dates: start: 20090509
  2. THIORIDAZINE HYDROCHLORIDE [Concomitant]
     Dosage: 10 MG, UNK
     Dates: start: 20090408, end: 20090512
  3. ATENSINA [Concomitant]
     Indication: BLOOD PRESSURE
     Dosage: 300 MG, BID
     Route: 048
  4. CLORANA [Concomitant]
     Indication: BLOOD PRESSURE
     Dosage: 1 TABLET IN THE MORNING
     Route: 048

REACTIONS (6)
  - EATING DISORDER [None]
  - INFECTION [None]
  - IRRITABILITY [None]
  - MUSCULOSKELETAL STIFFNESS [None]
  - PULMONARY SEPSIS [None]
  - WEIGHT DECREASED [None]
